FAERS Safety Report 10453562 (Version 1)
Quarter: 2014Q3

REPORT INFORMATION
  Report Type: Spontaneous
  Country: US (occurrence: US)
  Receive Date: 20140915
  Receipt Date: 20140915
  Transmission Date: 20150326
  Serious: No
  Sender: FDA-Public Use
  Company Number: US-BRISTOL-MYERS SQUIBB COMPANY-21181276

PATIENT
  Age: 61 Year
  Sex: Female

DRUGS (5)
  1. ZOLPIDEM [Concomitant]
     Active Substance: ZOLPIDEM\ZOLPIDEM TARTRATE
  2. OXYGEN. [Concomitant]
     Active Substance: OXYGEN
     Dosage: SUPPLEMENT OXYGEN AT NIGHT
  3. ELIQUIS [Suspect]
     Active Substance: APIXABAN
     Indication: ATRIAL FIBRILLATION
     Dates: start: 20140401
  4. LORAZEPAM. [Concomitant]
     Active Substance: LORAZEPAM
  5. ATENOLOL. [Concomitant]
     Active Substance: ATENOLOL

REACTIONS (2)
  - Epistaxis [Unknown]
  - Chest discomfort [Unknown]
